FAERS Safety Report 15374543 (Version 4)
Quarter: 2018Q3

REPORT INFORMATION
  Report Type: Spontaneous
  Country: SK (occurrence: SK)
  Receive Date: 20180912
  Receipt Date: 20180926
  Transmission Date: 20181010
  Serious: Yes (Hospitalization, Other)
  Sender: FDA-Public Use
  Company Number: SK-PFIZER INC-2018364993

PATIENT
  Age: 48 Year
  Sex: Male

DRUGS (3)
  1. CLINDAMYCIN HCL [Suspect]
     Active Substance: CLINDAMYCIN HYDROCHLORIDE
     Dosage: UNK
  2. GENTAMYCIN [Suspect]
     Active Substance: GENTAMICIN
     Dosage: UNK
  3. METRONIDAZOLE. [Suspect]
     Active Substance: METRONIDAZOLE
     Dosage: UNK

REACTIONS (5)
  - Alanine aminotransferase increased [Recovered/Resolved]
  - Blood bilirubin abnormal [Recovered/Resolved]
  - Sepsis [Unknown]
  - Hepatitis [Recovered/Resolved]
  - Aspartate aminotransferase increased [Recovered/Resolved]
